FAERS Safety Report 7023965-0 (Version None)
Quarter: 2010Q4

REPORT INFORMATION
  Report Type: 
  Country: None (occurrence: None)
  Receive Date: 20101001
  Receipt Date: 20100920
  Transmission Date: 20110411
  Serious: Yes (Hospitalization)
  Sender: FDA-Public Use
  Company Number: US-ELI_LILLY_AND_COMPANY-US201009005603

PATIENT
  Sex: Female
  Weight: 101.13 kg

DRUGS (18)
  1. CYMBALTA [Suspect]
     Indication: FIBROMYALGIA
     Dosage: 60 MG, 2/D
     Route: 048
     Dates: start: 20080101
  2. LIPITOR [Concomitant]
     Indication: BLOOD CHOLESTEROL INCREASED
     Dosage: UNK, UNKNOWN
     Route: 048
     Dates: start: 20090101
  3. LIPITOR [Concomitant]
     Dosage: UNK, UNKNOWN
     Route: 048
  4. LYRICA [Concomitant]
     Indication: FIBROMYALGIA
     Dosage: 50 MG, 2/D
     Route: 048
     Dates: start: 20080101
  5. LYRICA [Concomitant]
     Dosage: 75 MG, 2/D
  6. VITAMIN B-12 [Concomitant]
     Dosage: 500 MG, DAILY (1/D)
     Dates: start: 20050101
  7. ASCORBIC ACID [Concomitant]
     Dosage: 500 MG, DAILY (1/D)
     Dates: start: 20050101
  8. TOPROL-XL [Concomitant]
     Indication: HYPERTENSION
     Dosage: 100 MG, DAILY (1/D)
     Dates: start: 20080101
  9. MICARDIS [Concomitant]
     Indication: HYPERTENSION
     Dosage: 40 MG, DAILY (1/D)
     Dates: start: 20080101
  10. NEXIUM [Concomitant]
     Indication: ULCER
     Dosage: 40 MG, 2/D
     Dates: start: 20050101
  11. WELLBUTRIN XL [Concomitant]
     Indication: DEPRESSION
     Dosage: 300 MG, 2/D
     Dates: start: 20090101
  12. HYDROCHLOROTHIAZIDE [Concomitant]
     Indication: HYPERTENSION
     Dosage: 25 MG, DAILY (1/D)
     Dates: start: 20050101
  13. LOVAZA [Concomitant]
     Dosage: 1200 MG, 2/D
     Dates: start: 20080101
  14. COENZYME Q10 [Concomitant]
     Dosage: 100 MG, 2/D
     Dates: start: 20080101
  15. CINNAMON [Concomitant]
     Dosage: 1000 MG, UNK
     Dates: start: 20050101
  16. NIACIN [Concomitant]
     Dosage: 500 MG, DAILY (1/D)
     Dates: start: 20000101
  17. POTASSIUM [Concomitant]
     Indication: MUSCLE SPASMS
     Dates: start: 20050101
  18. CALCIUM W/VITAMIN D /00188401/ [Concomitant]
     Dates: start: 20100801

REACTIONS (3)
  - DRUG INEFFECTIVE [None]
  - NECK PAIN [None]
  - PAIN IN EXTREMITY [None]
